FAERS Safety Report 19986959 (Version 2)
Quarter: 2021Q4

REPORT INFORMATION
  Report Type: Spontaneous
  Country: US (occurrence: None)
  Receive Date: 20211023
  Receipt Date: 20211113
  Transmission Date: 20220303
  Serious: Yes (Other)
  Sender: FDA-Public Use
  Company Number: US-ROCHE-2939524

PATIENT
  Sex: Male

DRUGS (2)
  1. ESBRIET [Suspect]
     Active Substance: PIRFENIDONE
     Indication: Idiopathic pulmonary fibrosis
     Dosage: 3 TIMES DAILY
     Route: 048
     Dates: start: 20210908, end: 20211011
  2. ESBRIET [Suspect]
     Active Substance: PIRFENIDONE
     Dosage: 3 TIMES DAILY
     Route: 048
     Dates: start: 20210913, end: 20211018

REACTIONS (8)
  - Syncope [Recovered/Resolved]
  - Headache [Recovered/Resolved]
  - Insomnia [Recovered/Resolved]
  - Dyspnoea [Recovered/Resolved]
  - Seizure [Unknown]
  - Dizziness [Unknown]
  - Loss of consciousness [Unknown]
  - Gait inability [Unknown]
